FAERS Safety Report 25145821 (Version 1)
Quarter: 2025Q2

REPORT INFORMATION
  Report Type: Spontaneous
  Country: FR (occurrence: FR)
  Receive Date: 20250401
  Receipt Date: 20250401
  Transmission Date: 20250716
  Serious: Yes (Death, Other)
  Sender: PFIZER
  Company Number: FR-AstraZeneca-CH-00831138A

PATIENT
  Sex: Female

DRUGS (2)
  1. BEVACIZUMAB [Suspect]
     Active Substance: BEVACIZUMAB
  2. OLAPARIB [Suspect]
     Active Substance: OLAPARIB
     Dosage: 600 MG, 1X/DAY

REACTIONS (5)
  - Sepsis [Fatal]
  - Neutropenia [Fatal]
  - Thrombocytopenia [Fatal]
  - Anaemia [Fatal]
  - Leukaemia [Fatal]
